FAERS Safety Report 11766764 (Version 1)
Quarter: 2015Q4

REPORT INFORMATION
  Report Type: Spontaneous
  Country: US (occurrence: None)
  Receive Date: 20151120
  Receipt Date: 20151120
  Transmission Date: 20160304
  Serious: Yes (Death, Hospitalization)
  Sender: FDA-Public Use
  Company Number: None

PATIENT
  Age: 29 Year
  Sex: Male
  Weight: 77.3 kg

DRUGS (6)
  1. DAUNORUBICIN [Suspect]
     Active Substance: DAUNORUBICIN
     Dates: end: 20151030
  2. ONCASPAR [Suspect]
     Active Substance: PEGASPARGASE
     Dates: end: 20151026
  3. METHOTREXATE [Suspect]
     Active Substance: METHOTREXATE
     Dates: end: 20151030
  4. PREDNISONE. [Suspect]
     Active Substance: PREDNISONE
     Dates: end: 20151102
  5. VINCRISTINE SULFATE. [Suspect]
     Active Substance: VINCRISTINE SULFATE
     Dates: end: 20151030
  6. CYTARABINE. [Suspect]
     Active Substance: CYTARABINE
     Dates: end: 20151023

REACTIONS (11)
  - Pneumonia [None]
  - Bacterial test positive [None]
  - Staphylococcus test positive [None]
  - Fatigue [None]
  - Hyperhidrosis [None]
  - Acute respiratory failure [None]
  - Blood pressure systolic decreased [None]
  - Pyrexia [None]
  - Respiratory failure [None]
  - Neutrophil count decreased [None]
  - Lung infiltration [None]

NARRATIVE: CASE EVENT DATE: 20151102
